FAERS Safety Report 6425268-1 (Version None)
Quarter: 2009Q4

REPORT INFORMATION
  Report Type: 
  Country: None (occurrence: None)
  Receive Date: 20091030
  Receipt Date: 20091030
  Transmission Date: 20100525
  Serious: Yes (Other)
  Sender: FDA-Public Use
  Company Number: None

PATIENT
  Age: 53 Year
  Sex: Female
  Weight: 57 kg

DRUGS (5)
  1. PRECEDEX [Suspect]
     Indication: SEDATIVE THERAPY
     Dosage: 2 MCG/KG/HR  ; .2 MCG/KG/HR
     Route: 042
  2. (ANESTHETICS NOS) [Concomitant]
  3. FAMOTIDINE [Concomitant]
  4. (OXYGEN) [Concomitant]
  5. BUPIVACAINE [Concomitant]

REACTIONS (5)
  - BRADYCARDIA [None]
  - CHOKING [None]
  - HEART RATE DECREASED [None]
  - OBSTRUCTIVE AIRWAYS DISORDER [None]
  - SEDATION [None]
